FAERS Safety Report 19380399 (Version 1)
Quarter: 2021Q2

REPORT INFORMATION
  Report Type: Spontaneous
  Country: US (occurrence: US)
  Receive Date: 20210607
  Receipt Date: 20210607
  Transmission Date: 20210717
  Serious: No
  Sender: FDA-Public Use
  Company Number: US-TEVA-2021-US-1914152

PATIENT
  Age: 72 Year
  Sex: Female
  Weight: 89.36 kg

DRUGS (2)
  1. PRAVASTATIN SODIUM. [Suspect]
     Active Substance: PRAVASTATIN SODIUM
     Route: 065
  2. ROSUVASTATIN. [Suspect]
     Active Substance: ROSUVASTATIN
     Dosage: ON LOWER DOSAGE NOW, AT NIGHT
     Route: 065
     Dates: start: 202104

REACTIONS (1)
  - Arthralgia [Unknown]
